FAERS Safety Report 16783312 (Version 1)
Quarter: 2019Q3

REPORT INFORMATION
  Report Type: Spontaneous
  Country: IT (occurrence: IT)
  Receive Date: 20190907
  Receipt Date: 20190907
  Transmission Date: 20191005
  Serious: Yes (Other)
  Sender: FDA-Public Use
  Company Number: IT-AUROBINDO-AUR-APL-2019-059066

PATIENT

DRUGS (6)
  1. MELPHALAN INJECTION [Suspect]
     Active Substance: MELPHALAN
     Indication: RETINOBLASTOMA
     Dosage: 2.5 - 5 MG, 3-9 INFUSIONS EVERY 3 WEEKS
     Route: 013
  2. TOPOTECAN [Suspect]
     Active Substance: TOPOTECAN HYDROCHLORIDE
     Indication: RETINOBLASTOMA
     Dosage: 1 INJECTION 1 WEEK AFTER IA, INTRAVITREAL
     Route: 065
  3. MELPHALAN. [Suspect]
     Active Substance: MELPHALAN
     Indication: RETINOBLASTOMA
     Dosage: 2.5 - 5 MG, 3-9 INFUSIONS EVERY 3 WEEKS
     Route: 013
  4. CARBOPLATIN. [Suspect]
     Active Substance: CARBOPLATIN
     Indication: RETINOBLASTOMA
     Dosage: 1 INJECTION 1 WEEK AFTER IA, INTRAVITREAL
     Route: 065
  5. TOPOTECAN [Suspect]
     Active Substance: TOPOTECAN HYDROCHLORIDE
     Indication: RETINOBLASTOMA
     Dosage: 0.3 - 2 MG, 3-9 INFUSIONS EVERY 3 WEEKS
     Route: 013
  6. CARBOPLATIN CONCENTRATE FOR SOLUTION FOR INFUSION [Suspect]
     Active Substance: CARBOPLATIN
     Indication: RETINOBLASTOMA
     Dosage: 3-9 INFUSIONS EVERY 3 WEEKS
     Route: 013

REACTIONS (2)
  - Off label use [Unknown]
  - Chorioretinal atrophy [Unknown]
